FAERS Safety Report 7619558-4 (Version None)
Quarter: 2011Q3

REPORT INFORMATION
  Report Type: 
  Country: None (occurrence: None)
  Receive Date: 20110719
  Receipt Date: 20110707
  Transmission Date: 20111222
  Serious: Yes (Hospitalization)
  Sender: FDA-Public Use
  Company Number: US-JNJFOC-20110704079

PATIENT
  Sex: Male
  Weight: 86.8 kg

DRUGS (7)
  1. ELAVIL [Concomitant]
  2. VENOFER [Concomitant]
  3. REMICADE [Suspect]
     Indication: INFLAMMATORY BOWEL DISEASE
     Route: 042
     Dates: start: 20080626
  4. REMICADE [Suspect]
     Route: 042
     Dates: start: 20110304
  5. PREVACID [Concomitant]
  6. MIRALAX [Concomitant]
  7. FERROUS SULFATE TAB [Concomitant]

REACTIONS (1)
  - ABDOMINAL PAIN [None]
